FAERS Safety Report 6485775-2 (Version None)
Quarter: 2009Q4

REPORT INFORMATION
  Report Type: 
  Country: None (occurrence: None)
  Receive Date: 20091207
  Receipt Date: 20091120
  Transmission Date: 20100525
  Serious: Yes (Hospitalization, Other)
  Sender: FDA-Public Use
  Company Number: AUR-APL-2009-01353

PATIENT
  Age: 16 Year
  Sex: Male

DRUGS (3)
  1. RISPERIDONE [Suspect]
     Dosage: 5MG, DAILY,ORAL
     Route: 048
  2. FLUOXETINE [Suspect]
     Dosage: 30-40NGM DAILY, ORAL
     Route: 048
  3. FISH OIL [Concomitant]

REACTIONS (12)
  - AFFECTIVE DISORDER [None]
  - BLOOD PROLACTIN INCREASED [None]
  - CONDITION AGGRAVATED [None]
  - DEPRESSION [None]
  - DRUG INTERACTION [None]
  - ELECTROCARDIOGRAM QT PROLONGED [None]
  - GALACTORRHOEA [None]
  - LETHARGY [None]
  - MUSCULOSKELETAL STIFFNESS [None]
  - SUICIDAL IDEATION [None]
  - TIC [None]
  - WEIGHT INCREASED [None]
